FAERS Safety Report 5723349-9 (Version None)
Quarter: 2008Q2

REPORT INFORMATION
  Report Type: 
  Country: None (occurrence: None)
  Receive Date: 20080429
  Receipt Date: 20080429
  Transmission Date: 20081010
  Serious: Yes (Hospitalization, Other)
  Sender: FDA-Public Use
  Company Number: None

PATIENT
  Age: 33 Year
  Sex: Female
  Weight: 68.0396 kg

DRUGS (2)
  1. YAZ [Suspect]
     Indication: ACNE
     Dosage: ONCE DAILY
     Dates: start: 20070805, end: 20080105
  2. YAZ [Suspect]
     Indication: MUSCLE SPASMS
     Dosage: ONCE DAILY
     Dates: start: 20070805, end: 20080105

REACTIONS (2)
  - PAIN [None]
  - POLYCYSTIC OVARIES [None]
